FAERS Safety Report 6977912-8 (Version None)
Quarter: 2010Q3

REPORT INFORMATION
  Report Type: 
  Country: None (occurrence: None)
  Receive Date: 20100913
  Receipt Date: 20100902
  Transmission Date: 20110219
  Serious: Yes (Hospitalization)
  Sender: FDA-Public Use
  Company Number: US-US-EMD SERONO, INC.-233184J09USA

PATIENT
  Sex: Male
  Weight: 98 kg

DRUGS (25)
  1. REBIF [Suspect]
     Indication: MULTIPLE SCLEROSIS
     Route: 058
     Dates: start: 20060626, end: 20060724
  2. REBIF [Suspect]
     Route: 058
     Dates: start: 20070920, end: 20090126
  3. REBIF [Suspect]
     Route: 058
     Dates: start: 20090527, end: 20091101
  4. REBIF [Suspect]
     Route: 058
     Dates: start: 20100318
  5. PNEUMONIA SHOT [Concomitant]
     Indication: PNEUMONIA
     Route: 065
     Dates: start: 20091026, end: 20091026
  6. NEXIUM [Concomitant]
     Route: 065
     Dates: start: 20091022
  7. METHOTREXATE SODIUM [Concomitant]
     Route: 048
     Dates: start: 20090130, end: 20090101
  8. HYDROCHLOROTHIAZIDE [Concomitant]
     Route: 065
     Dates: start: 20090130
  9. REQUIP [Concomitant]
     Route: 048
     Dates: start: 20081219
  10. PROBIOTIC COMPLEX [Concomitant]
     Route: 065
     Dates: start: 20081217
  11. POTASSIUM [Concomitant]
     Route: 065
     Dates: start: 20081217
  12. GARLIC [Concomitant]
     Route: 065
     Dates: start: 20081217
  13. FLAXSEED OIL [Concomitant]
     Route: 065
     Dates: start: 20081217
  14. NAPROXEN [Concomitant]
     Route: 065
     Dates: start: 20081217
  15. NAPROXEN [Concomitant]
     Route: 065
     Dates: start: 20081217
  16. ATROVENT [Concomitant]
     Route: 045
     Dates: start: 20081217
  17. GABAPENTIN [Concomitant]
     Route: 065
     Dates: start: 20081217
  18. GABAPENTIN [Concomitant]
     Route: 065
  19. TERAZOSIN HCL [Concomitant]
     Route: 065
     Dates: start: 20081217
  20. FEXOFENADINE HCL [Concomitant]
     Route: 065
     Dates: start: 20081217
  21. CITALOPRAM HYDROBROMIDE [Concomitant]
     Route: 065
     Dates: start: 20081217
  22. PROSCAR [Concomitant]
  23. UROXATRAL [Concomitant]
  24. TRAMADOL HCL [Concomitant]
  25. COUMADIN [Concomitant]

REACTIONS (8)
  - ANKLE FRACTURE [None]
  - COUGH [None]
  - DEEP VEIN THROMBOSIS [None]
  - DYSPHAGIA [None]
  - FALL [None]
  - PULMONARY EMBOLISM [None]
  - PYREXIA [None]
  - SYNCOPE [None]
